FAERS Safety Report 9514924 (Version 1)
Quarter: 2013Q1

REPORT INFORMATION
  Report Type: Spontaneous
  Country: US (occurrence: None)
  Receive Date: 20130305
  Receipt Date: 20130305
  Transmission Date: 20140127
  Serious: Yes (Other)
  Sender: FDA-Public Use
  Company Number: 163-21880-12103106

PATIENT
  Age: 75 Year
  Sex: Male
  Weight: 88.91 kg

DRUGS (5)
  1. REVLIMID [Suspect]
     Indication: PLASMA CELL MYELOMA
     Dosage: 25 MG, 21 IN 28 D, PO
     Route: 048
     Dates: start: 201209
  2. BORTEZOMIB (BORTEZOMIB) (UNKNOWN) [Concomitant]
  3. PROCHLORPERAZINE (PROCHLORPERAZINE) (UNKNOWN) [Concomitant]
  4. HYDROCODONE/ACETAMINOPHEN (REMEDEINE) (UNKNOWN) [Concomitant]
  5. DABIGATRAN (DABIGATRAN) (UNKNOWN) [Concomitant]

REACTIONS (4)
  - Fatigue [None]
  - Asthenia [None]
  - Dizziness [None]
  - Dyspnoea [None]
